FAERS Safety Report 20921775 (Version 1)
Quarter: 2022Q2

REPORT INFORMATION
  Report Type: Report from Study
  Country: US (occurrence: US)
  Receive Date: 20220606
  Receipt Date: 20220606
  Transmission Date: 20220721
  Serious: Yes (Other)
  Sender: FDA-Public Use
  Company Number: US-BRISTOL-MYERS SQUIBB COMPANY-2022-046436

PATIENT
  Age: 62 Year
  Sex: Male
  Weight: 120.2 kg

DRUGS (1)
  1. THALOMID [Suspect]
     Active Substance: THALIDOMIDE
     Indication: Plasmacytoma
     Route: 048

REACTIONS (2)
  - Kidney infection [Unknown]
  - Product use in unapproved indication [Unknown]
